FAERS Safety Report 17994866 (Version 2)
Quarter: 2020Q3

REPORT INFORMATION
  Report Type: Report from Study
  Country: None (occurrence: US)
  Receive Date: 20200708
  Receipt Date: 20200915
  Transmission Date: 20201103
  Serious: Yes (Hospitalization)
  Sender: FDA-Public Use
  Company Number: US-CLINIGEN GROUP PLC/ CLINIGEN HEALTHCARE LTD-US-CLGN-20-00280

PATIENT
  Age: 36 Year
  Sex: Female
  Weight: 45 kg

DRUGS (4)
  1. PROLEUKIN [Suspect]
     Active Substance: ALDESLEUKIN
     Indication: CERVIX CARCINOMA
     Route: 042
     Dates: start: 20200617, end: 20200617
  2. LN?145 [Suspect]
     Active Substance: LIFILEUCEL
     Indication: CERVIX CARCINOMA
     Route: 042
     Dates: start: 20200617, end: 20200617
  3. CYCLOPHOSPHAMIDE. [Suspect]
     Active Substance: CYCLOPHOSPHAMIDE
     Indication: CERVIX CARCINOMA
     Route: 042
     Dates: start: 20200609, end: 20200610
  4. FLUDARABINE [Suspect]
     Active Substance: FLUDARABINE PHOSPHATE
     Indication: CERVIX CARCINOMA
     Route: 042
     Dates: start: 20200611, end: 20200615

REACTIONS (2)
  - Presyncope [Recovered/Resolved]
  - Dehydration [Recovered/Resolved]

NARRATIVE: CASE EVENT DATE: 20200630
